FAERS Safety Report 21982825 (Version 2)
Quarter: 2023Q1

REPORT INFORMATION
  Report Type: Spontaneous
  Country: DE (occurrence: DE)
  Receive Date: 20230213
  Receipt Date: 20230220
  Transmission Date: 20230418
  Serious: Yes (Hospitalization)
  Sender: FDA-Public Use
  Company Number: DE-MYLANLABS-2023M1005513

PATIENT
  Sex: Female

DRUGS (9)
  1. LATANOPROST [Suspect]
     Active Substance: LATANOPROST
     Indication: Intraocular pressure increased
     Dosage: UNK
     Route: 065
  2. FLOXAL [Suspect]
     Active Substance: OFLOXACIN
     Indication: Prophylaxis
     Dosage: UNK (DAILY)
     Route: 047
     Dates: start: 20220504, end: 20220511
  3. PREDNISOLONE ACETATE [Suspect]
     Active Substance: PREDNISOLONE ACETATE
     Indication: Prophylaxis
     Dosage: UNK
     Route: 047
     Dates: start: 20220504, end: 20220511
  4. DEXA EDO [Suspect]
     Active Substance: DEXAMETHASONE SODIUM PHOSPHATE
     Indication: Prophylaxis
     Dosage: UNK (DAILY)
     Route: 047
     Dates: start: 20220504, end: 20220608
  5. AZOPT [Suspect]
     Active Substance: BRINZOLAMIDE
     Indication: Intraocular pressure increased
     Dosage: UNK (DAILY)
     Route: 047
     Dates: start: 20210224, end: 20220613
  6. ACETAZOLAMIDE [Suspect]
     Active Substance: ACETAZOLAMIDE
     Indication: Intraocular pressure increased
     Dosage: UNK (3 DAILY)
     Route: 048
     Dates: start: 20220608
  7. BIMATOPROST\TIMOLOL [Suspect]
     Active Substance: BIMATOPROST\TIMOLOL
     Indication: Intraocular pressure increased
     Dosage: UNK
     Route: 047
     Dates: start: 20201126
  8. SIMBRINZA [Concomitant]
     Active Substance: BRIMONIDINE TARTRATE\BRINZOLAMIDE
     Indication: Intraocular pressure increased
     Dosage: UNK (2 DAILY)
     Route: 047
     Dates: start: 20220613
  9. VIDISEPT (POVIDONE) [Concomitant]
     Indication: Surgery
     Dosage: UNK
     Route: 065
     Dates: start: 20220505

REACTIONS (1)
  - Intraocular pressure increased [Not Recovered/Not Resolved]

NARRATIVE: CASE EVENT DATE: 20220323
